FAERS Safety Report 7275213-4 (Version None)
Quarter: 2011Q1

REPORT INFORMATION
  Report Type: 
  Country: None (occurrence: None)
  Receive Date: 20110204
  Receipt Date: 20110126
  Transmission Date: 20110831
  Serious: Yes (Other)
  Sender: FDA-Public Use
  Company Number: PHHY2011US06529

PATIENT
  Sex: Male

DRUGS (2)
  1. EXJADE [Suspect]
     Indication: MYELODYSPLASTIC SYNDROME
     Dosage: 500 MG, BID
     Route: 048
  2. EXJADE [Suspect]
     Indication: IRON METABOLISM DISORDER

REACTIONS (4)
  - GASTROOESOPHAGEAL REFLUX DISEASE [None]
  - OCULAR ICTERUS [None]
  - HAEMATOCHEZIA [None]
  - PRURITUS GENERALISED [None]
